FAERS Safety Report 8517023-3 (Version None)
Quarter: 2012Q3

REPORT INFORMATION
  Report Type: 
  Country: None (occurrence: None)
  Receive Date: 20120718
  Receipt Date: 20120713
  Transmission Date: 20120928
  Serious: Yes (Other)
  Sender: FDA-Public Use
  Company Number: US-BAYER-2012-017491

PATIENT
  Age: 26 Year
  Sex: Female
  Weight: 72.562 kg

DRUGS (3)
  1. YAZ [Suspect]
     Dosage: UNK
     Dates: start: 20080301, end: 20091201
  2. YAZ [Suspect]
     Dosage: UNK
     Route: 048
     Dates: start: 20071001, end: 20091201
  3. LOESTRIN 1.5/30 [Concomitant]

REACTIONS (3)
  - CHOLELITHIASIS [None]
  - PAIN [None]
  - CHOLECYSTITIS [None]
